FAERS Safety Report 6174043-4 (Version None)
Quarter: 2009Q2

REPORT INFORMATION
  Report Type: 
  Country: None (occurrence: None)
  Receive Date: 20090430
  Receipt Date: 20080624
  Transmission Date: 20091009
  Serious: No
  Sender: FDA-Public Use
  Company Number: US-ASTRAZENECA-2008UW04209

PATIENT
  Age: 60 Year
  Sex: Female
  Weight: 81.6 kg

DRUGS (5)
  1. NEXIUM [Suspect]
     Indication: GASTROOESOPHAGEAL REFLUX DISEASE
     Route: 048
  2. NEXIUM [Suspect]
     Indication: IRRITABLE BOWEL SYNDROME
     Route: 048
  3. TOPROL-XL [Concomitant]
     Route: 048
  4. MIACALCIN [Concomitant]
  5. ZANTAC [Concomitant]

REACTIONS (2)
  - ABDOMINAL DISCOMFORT [None]
  - IRRITABLE BOWEL SYNDROME [None]
